APPROVED DRUG PRODUCT: DITROPAN XL
Active Ingredient: OXYBUTYNIN CHLORIDE
Strength: 15MG **Federal Register determination that product was not discontinued or withdrawn for safety or effectiveness reasons**
Dosage Form/Route: TABLET, EXTENDED RELEASE;ORAL
Application: N020897 | Product #003
Applicant: JANSSEN PHARMACEUTICALS INC
Approved: Jun 22, 1999 | RLD: Yes | RS: No | Type: DISCN